FAERS Safety Report 5523533-3 (Version None)
Quarter: 2007Q4

REPORT INFORMATION
  Report Type: 
  Country: None (occurrence: None)
  Receive Date: 20071121
  Receipt Date: 20071114
  Transmission Date: 20080405
  Serious: Yes (Hospitalization)
  Sender: FDA-Public Use
  Company Number: FR-ROCHE-532115

PATIENT
  Age: 45 Year
  Sex: Female

DRUGS (7)
  1. RIVOTRIL [Suspect]
     Indication: MYOCLONUS
     Route: 048
  2. HERCEPTIN [Suspect]
     Indication: BREAST NEOPLASM
     Dosage: FORM REPORTED AS INJECTABLE SOLUTION.
     Route: 042
     Dates: end: 20070502
  3. ARIMIDEX [Suspect]
     Indication: BREAST NEOPLASM
     Route: 048
     Dates: end: 20070502
  4. PREVISCAN [Suspect]
     Indication: VENOUS THROMBOSIS
     Dosage: DOSAGE REGIMEN REPORTED AS 0.75 DOSE Q.
     Route: 048
     Dates: end: 20070502
  5. RAMIPRIL [Suspect]
     Indication: DRUG USE FOR UNKNOWN INDICATION
     Dosage: STARTED BEFORE 2006.
     Route: 048
     Dates: end: 20070502
  6. ABILIFY [Suspect]
     Indication: SCHIZOPHRENIA
     Route: 048
  7. ZYPREXA [Concomitant]

REACTIONS (1)
  - BONE MARROW FAILURE [None]
